FAERS Safety Report 17140246 (Version 1)
Quarter: 2019Q4

REPORT INFORMATION
  Report Type: Spontaneous
  Country: US (occurrence: US)
  Receive Date: 20191211
  Receipt Date: 20191211
  Transmission Date: 20200122
  Serious: Yes (Other)
  Sender: FDA-Public Use
  Company Number: NVSC2019US063202

PATIENT
  Sex: Male

DRUGS (2)
  1. PROMACTA [Suspect]
     Active Substance: ELTROMBOPAG OLAMINE
     Indication: HAEMORRHAGIC DISORDER
  2. PROMACTA [Suspect]
     Active Substance: ELTROMBOPAG OLAMINE
     Indication: PURPURA
     Dosage: 50 MG, QD
     Route: 048
     Dates: start: 20190906, end: 201910

REACTIONS (2)
  - Drug ineffective [Unknown]
  - Disease progression [Unknown]
